FAERS Safety Report 25878726 (Version 4)
Quarter: 2025Q4

REPORT INFORMATION
  Report Type: Spontaneous
  Country: EU (occurrence: EU)
  Receive Date: 20251003
  Receipt Date: 20251017
  Transmission Date: 20260118
  Serious: Yes (Life-Threatening, Hospitalization, Other)
  Sender: NOVARTIS
  Company Number: EU-STADA-01451311

PATIENT
  Age: 18 Year
  Sex: Female
  Weight: 50 kg

DRUGS (52)
  1. CYTARABINE [Suspect]
     Active Substance: CYTARABINE
     Indication: Acute myeloid leukaemia
     Dosage: UNK, (DAY1-7)
     Route: 065
     Dates: start: 2024
  2. MYCOPHENOLATE MOFETIL [Suspect]
     Active Substance: MYCOPHENOLATE MOFETIL
     Indication: Immunosuppressant drug therapy
     Dosage: UNK (FROM DAY +1 (TRANSPLANT))
     Route: 065
  3. CYCLOSPORINE [Suspect]
     Active Substance: CYCLOSPORINE
     Indication: Immunosuppressant drug therapy
     Dosage: UNK FROM DAY -1 (TRANSPLANT)
     Route: 065
  4. CYCLOSPORINE [Suspect]
     Active Substance: CYCLOSPORINE
     Indication: Immunosuppressant drug therapy
     Dosage: UNK
     Route: 065
  5. DICLOFENAC [Suspect]
     Active Substance: DICLOFENAC
     Indication: Proctalgia
     Dosage: UNK
     Route: 042
  6. FENTANYL [Suspect]
     Active Substance: FENTANYL
     Indication: Proctalgia
     Dosage: UNK (PATCH)
     Route: 062
  7. LINEZOLID [Suspect]
     Active Substance: LINEZOLID
     Indication: Proctalgia
     Dosage: UNK
     Route: 065
  8. VANCOMYCIN [Suspect]
     Active Substance: VANCOMYCIN
     Indication: Pseudomonas infection
     Dosage: 500 MG, QD
     Route: 042
  9. VANCOMYCIN [Suspect]
     Active Substance: VANCOMYCIN
     Indication: Febrile neutropenia
  10. VANCOMYCIN [Suspect]
     Active Substance: VANCOMYCIN
     Indication: Antibiotic therapy
  11. ALKERAN [Suspect]
     Active Substance: MELPHALAN
     Indication: Bone marrow conditioning regimen
     Dosage: UNK
     Route: 065
  12. CYTARABINE [Suspect]
     Active Substance: CYTARABINE
     Indication: Acute myeloid leukaemia
     Dosage: UNK (DAY1-7)STARTED ON DAY 25
     Route: 065
     Dates: start: 2024
  13. CYTARABINE [Suspect]
     Active Substance: CYTARABINE
     Indication: Acute undifferentiated leukaemia
  14. CYTARABINE [Suspect]
     Active Substance: CYTARABINE
     Indication: Proctalgia
  15. AZACITIDINE [Suspect]
     Active Substance: AZACITIDINE
     Indication: Acute undifferentiated leukaemia
     Dosage: UNK (TWO CYCLES AT 4-5 WEEK INTERVALS)
     Route: 065
  16. DAUNORUBICIN [Suspect]
     Active Substance: DAUNORUBICIN
     Indication: Acute myeloid leukaemia
     Dosage: UNK (DAY 1-3)
     Route: 065
     Dates: start: 2024
  17. VENETOCLAX [Suspect]
     Active Substance: VENETOCLAX
     Indication: Acute myeloid leukaemia
     Dosage: UNK
     Route: 065
  18. VENETOCLAX [Suspect]
     Active Substance: VENETOCLAX
     Indication: Acute undifferentiated leukaemia
     Dosage: UNK (RECEIVED 2 CYCLES) (TWO CYCLES AT 4-5 WEEK INTERVALS)
     Route: 065
  19. VENETOCLAX [Suspect]
     Active Substance: VENETOCLAX
     Dosage: STARTED ON DAY 25
     Route: 048
     Dates: start: 2024
  20. FLUDARABINE [Suspect]
     Active Substance: FLUDARABINE PHOSPHATE
     Indication: Acute myeloid leukaemia
     Dosage: 30 MG/M2, QD, STARTED ON DAY 25
     Route: 065
     Dates: start: 2024
  21. FLUDARABINE [Suspect]
     Active Substance: FLUDARABINE PHOSPHATE
     Indication: Acute undifferentiated leukaemia
  22. IDARUBICIN HYDROCHLORIDE [Suspect]
     Active Substance: IDARUBICIN HYDROCHLORIDE
     Indication: Acute myeloid leukaemia
     Dosage: UNK (STARTED ON DAY 25)
     Route: 065
     Dates: start: 2024
  23. IDARUBICIN HYDROCHLORIDE [Suspect]
     Active Substance: IDARUBICIN HYDROCHLORIDE
     Indication: Acute undifferentiated leukaemia
  24. CYCLOPHOSPHAMIDE [Suspect]
     Active Substance: CYCLOPHOSPHAMIDE
     Indication: Immunosuppressant drug therapy
     Dosage: UNK (POST-TRANSPLANT ON DAYS +3 AND +5)
     Route: 065
  25. AVIBACTAM SODIUM\CEFTAZIDIME [Suspect]
     Active Substance: AVIBACTAM SODIUM\CEFTAZIDIME
     Indication: Proctalgia
     Dosage: UNK
     Route: 065
  26. AVIBACTAM SODIUM\CEFTAZIDIME [Suspect]
     Active Substance: AVIBACTAM SODIUM\CEFTAZIDIME
     Indication: Pseudomonas infection
  27. AVIBACTAM SODIUM\CEFTAZIDIME [Suspect]
     Active Substance: AVIBACTAM SODIUM\CEFTAZIDIME
     Indication: Febrile neutropenia
  28. AMIKACIN [Suspect]
     Active Substance: AMIKACIN
     Indication: Evidence based treatment
     Dosage: UNK
     Route: 065
  29. AMIKACIN [Suspect]
     Active Substance: AMIKACIN
     Indication: Proctalgia
  30. AMIKACIN [Suspect]
     Active Substance: AMIKACIN
     Indication: Febrile neutropenia
  31. AMIKACIN [Suspect]
     Active Substance: AMIKACIN
     Indication: Antibiotic therapy
  32. COLISTIMETHATE SODIUM [Suspect]
     Active Substance: COLISTIMETHATE SODIUM
     Indication: Pseudomonas infection
     Dosage: UNK
     Route: 065
  33. COLISTIMETHATE SODIUM [Suspect]
     Active Substance: COLISTIMETHATE SODIUM
     Indication: Proctalgia
  34. FOSFOMYCIN [Suspect]
     Active Substance: FOSFOMYCIN
     Indication: Evidence based treatment
     Dosage: UNK
     Route: 065
  35. FOSFOMYCIN [Suspect]
     Active Substance: FOSFOMYCIN
     Indication: Febrile neutropenia
  36. MELPHALAN [Suspect]
     Active Substance: MELPHALAN
     Indication: Acute undifferentiated leukaemia
     Dosage: UNK
     Route: 065
  37. MELPHALAN [Suspect]
     Active Substance: MELPHALAN
     Indication: Bone marrow conditioning regimen
  38. MEROPENEM [Suspect]
     Active Substance: MEROPENEM
     Indication: Product used for unknown indication
     Dosage: UNK (ON DAY 18 OF CHEMOTHERAPY )
     Route: 065
  39. PIPERACILLIN AND TAZOBACTAM [Suspect]
     Active Substance: PIPERACILLIN SODIUM\TAZOBACTAM SODIUM
     Indication: Drug therapy
     Dosage: UNK
     Route: 065
  40. CILASTATIN\IMIPENEM\RELEBACTAM [Suspect]
     Active Substance: CILASTATIN\IMIPENEM\RELEBACTAM
     Indication: Pseudomonas infection
     Dosage: UNK
     Route: 065
  41. HYDROXYUREA [Concomitant]
     Active Substance: HYDROXYUREA
     Indication: Hyperleukocytosis
     Dosage: UNK
     Route: 065
  42. FILGRASTIM [Concomitant]
     Active Substance: FILGRASTIM
     Indication: Febrile neutropenia
     Dosage: UNK
     Route: 065
  43. AVIBACTAM SODIUM\CEFTAZIDIME [Concomitant]
     Active Substance: AVIBACTAM SODIUM\CEFTAZIDIME
     Indication: Febrile neutropenia
     Dosage: UNK
     Route: 065
  44. AVIBACTAM SODIUM\CEFTAZIDIME [Concomitant]
     Active Substance: AVIBACTAM SODIUM\CEFTAZIDIME
     Indication: Proctalgia
  45. POSACONAZOLE [Concomitant]
     Active Substance: POSACONAZOLE
     Indication: Antifungal prophylaxis
     Dosage: UNK
     Route: 065
     Dates: start: 2024
  46. POSACONAZOLE [Concomitant]
     Active Substance: POSACONAZOLE
     Indication: Systemic mycosis
  47. CEFIDEROCOL [Concomitant]
     Active Substance: CEFIDEROCOL
     Indication: Pseudomonas infection
     Dosage: UNK
     Route: 065
  48. DICLOFENAC [Concomitant]
     Active Substance: DICLOFENAC
     Indication: Analgesic therapy
     Dosage: UNK
     Route: 042
  49. DICLOFENAC [Concomitant]
     Active Substance: DICLOFENAC
     Indication: Proctalgia
  50. COLISTIMETHATE SODIUM [Concomitant]
     Active Substance: COLISTIMETHATE SODIUM
     Indication: Proctalgia
     Dosage: UNK
     Route: 065
  51. FENTANYL [Concomitant]
     Active Substance: FENTANYL
     Indication: Product used for unknown indication
     Dosage: UNK
     Route: 065
  52. AMIKACIN [Concomitant]
     Active Substance: AMIKACIN
     Indication: Evidence based treatment
     Dosage: UNK
     Route: 065

REACTIONS (22)
  - Pseudomonas infection [Recovered/Resolved]
  - Renal failure [Recovering/Resolving]
  - Sepsis [Recovering/Resolving]
  - Pathogen resistance [Recovered/Resolved]
  - Drug ineffective [Unknown]
  - Neutropenia [Recovered/Resolved]
  - Soft tissue infection [Recovered/Resolved]
  - Skin maceration [Recovered/Resolved]
  - Erythema [Recovered/Resolved]
  - Tissue infiltration [Recovered/Resolved]
  - Febrile neutropenia [Recovered/Resolved]
  - Cellulitis [Recovered/Resolved]
  - Thrombocytopenia [Recovered/Resolved]
  - Pyrexia [Recovered/Resolved]
  - Proctalgia [Recovered/Resolved]
  - Nephropathy toxic [Recovering/Resolving]
  - Toxicity to various agents [Unknown]
  - Ototoxicity [Unknown]
  - Cough [Unknown]
  - Parainfluenzae virus infection [Unknown]
  - Rhinorrhoea [Unknown]
  - Off label use [Unknown]

NARRATIVE: CASE EVENT DATE: 20240601
